FAERS Safety Report 8130102-8 (Version None)
Quarter: 2011Q4

REPORT INFORMATION
  Report Type: 
  Country: None (occurrence: None)
  Receive Date: 20111227
  Receipt Date: 20111104
  Transmission Date: 20120403
  Serious: No
  Sender: FDA-Public Use
  Company Number: PHEH2011US07780

PATIENT
  Age: 51 Year
  Sex: Female
  Weight: 70.3 kg

DRUGS (10)
  1. EFFEXOR [Concomitant]
  2. EFFEXOR XR [Concomitant]
  3. BONIVA [Concomitant]
  4. LIPITOR [Concomitant]
  5. RITALIN [Concomitant]
  6. NUVIGIL [Concomitant]
  7. NEURONTIN [Concomitant]
  8. GILENYA [Suspect]
     Dosage: 0.5 MG, QD, ORAL
     Route: 048
  9. LUNESTA [Concomitant]
  10. KLONOPIN [Concomitant]

REACTIONS (4)
  - BLEPHAROSPASM [None]
  - VISION BLURRED [None]
  - MULTIPLE SCLEROSIS RELAPSE [None]
  - HYPOAESTHESIA [None]
